FAERS Safety Report 18652055 (Version 1)
Quarter: 2020Q4

REPORT INFORMATION
  Report Type: Other
  Country: US (occurrence: US)
  Receive Date: 20201223
  Receipt Date: 20201223
  Transmission Date: 20210114
  Serious: Yes (Death)
  Sender: FDA-Public Use
  Company Number: US-ROCHE-2733211

PATIENT
  Sex: Male

DRUGS (2)
  1. RITUXAN [Suspect]
     Active Substance: RITUXIMAB
     Indication: HODGKIN^S DISEASE
     Dosage: INFUSE 800 MG INTRAVENOUSLY EVERY 21 DAY FOR 6 CYCLES?10 ML VIAL INFUSION
     Route: 042
  2. RITUXAN [Suspect]
     Active Substance: RITUXIMAB
     Dosage: INFUSE 800 MG INTRAVENOUSLY EVERY 21 DAY(S) FOR 6 CYCLES?50 ML VIAL INFUSION
     Route: 042

REACTIONS (1)
  - Death [Fatal]
